FAERS Safety Report 24942281 (Version 2)
Quarter: 2025Q1

REPORT INFORMATION
  Report Type: Report from Study
  Country: CA (occurrence: CA)
  Receive Date: 20250207
  Receipt Date: 20250213
  Transmission Date: 20250408
  Serious: Yes (Disabling)
  Sender: BIOCON
  Company Number: CA-MIMS-BCONMC-11221

PATIENT

DRUGS (2)
  1. HULIO [Suspect]
     Active Substance: ADALIMUMAB-FKJP
     Indication: Product used for unknown indication
     Route: 058
     Dates: start: 20230316
  2. HULIO [Suspect]
     Active Substance: ADALIMUMAB-FKJP
     Route: 058
     Dates: start: 20230316

REACTIONS (3)
  - Loss of personal independence in daily activities [Unknown]
  - Product use issue [Unknown]
  - Product dose omission issue [Unknown]

NARRATIVE: CASE EVENT DATE: 20250128
